FAERS Safety Report 9139804 (Version 5)
Quarter: 2013Q2

REPORT INFORMATION
  Report Type: Spontaneous
  Country: JP (occurrence: JP)
  Receive Date: 20130305
  Receipt Date: 20130426
  Transmission Date: 20140414
  Serious: Yes (Hospitalization, Other)
  Sender: FDA-Public Use
  Company Number: JP-JNJFOC-20130300104

PATIENT
  Age: 19 Year
  Sex: Female
  Weight: 47 kg

DRUGS (10)
  1. IBUPROFEN [Suspect]
     Indication: HEADACHE
     Route: 065
     Dates: start: 200802
  2. CALONAL [Suspect]
     Indication: NASOPHARYNGITIS
     Route: 048
     Dates: start: 200802
  3. MINOMYCIN [Suspect]
     Indication: PNEUMONIA
     Route: 065
     Dates: start: 2008
  4. CEFEPIME HCL [Suspect]
     Indication: PNEUMONIA
     Route: 050
     Dates: start: 2008
  5. CARBENIN [Suspect]
     Indication: PNEUMONIA
     Route: 065
     Dates: start: 2008, end: 2008
  6. ARBEKACIN [Suspect]
     Indication: PNEUMONIA
     Route: 065
     Dates: start: 2008, end: 2008
  7. PAVULON [Suspect]
     Indication: PRODUCT USED FOR UNKNOWN INDICATION
     Route: 065
  8. BETAMETHASONE [Concomitant]
     Indication: PRODUCT USED FOR UNKNOWN INDICATION
     Route: 065
     Dates: start: 2008
  9. PREDNISONE [Concomitant]
     Indication: PRODUCT USED FOR UNKNOWN INDICATION
     Route: 065
     Dates: start: 2008, end: 2008
  10. METHYLPREDNISOLONE [Concomitant]
     Indication: PRODUCT USED FOR UNKNOWN INDICATION
     Route: 065
     Dates: start: 2008, end: 2008

REACTIONS (1)
  - Vanishing bile duct syndrome [Recovered/Resolved]
